FAERS Safety Report 4324070-4 (Version None)
Quarter: 2004Q1

REPORT INFORMATION
  Report Type: 
  Country: None (occurrence: None)
  Receive Date: 20040325
  Receipt Date: 20040319
  Transmission Date: 20041129
  Serious: Yes (Death)
  Sender: FDA-Public Use
  Company Number: 04-02-0405

PATIENT
  Age: 83 Year
  Sex: Male

DRUGS (2)
  1. CLOZAPINE [Suspect]
     Indication: DELUSION
     Dosage: 25-50 MG QD ORAL
     Route: 048
     Dates: start: 20020701, end: 20040101
  2. CLOZAPINE [Suspect]
     Indication: PARKINSON'S DISEASE
     Dosage: 25-50 MG QD ORAL
     Route: 048
     Dates: start: 20020701, end: 20040101

REACTIONS (1)
  - CARDIO-RESPIRATORY ARREST [None]
